FAERS Safety Report 5906034-X (Version None)
Quarter: 2008Q4

REPORT INFORMATION
  Report Type: 
  Country: None (occurrence: None)
  Receive Date: 20081002
  Receipt Date: 20080923
  Transmission Date: 20090506
  Serious: Yes (Hospitalization)
  Sender: FDA-Public Use
  Company Number: US-WYE-H06095508

PATIENT
  Age: 73 Year
  Sex: Female
  Weight: 50.8 kg

DRUGS (4)
  1. PREMARIN [Suspect]
     Dosage: NOT PROVIDED
  2. AMLODIPINE [Concomitant]
  3. ATIVAN [Concomitant]
     Dosage: NOT PROVIDED
  4. PROVERA [Suspect]
     Dosage: NOT PROVIDED

REACTIONS (1)
  - DELUSION [None]
